FAERS Safety Report 8004905-4 (Version None)
Quarter: 2011Q4

REPORT INFORMATION
  Report Type: 
  Country: None (occurrence: None)
  Receive Date: 20111223
  Receipt Date: 20111215
  Transmission Date: 20120403
  Serious: Yes (Death, Disabling)
  Sender: FDA-Public Use
  Company Number: JP-GENZYME-THYM-1003013

PATIENT
  Sex: Female
  Weight: 47 kg

DRUGS (41)
  1. LOXOPROFEN SODIUM [Concomitant]
     Indication: PRODUCT USED FOR UNKNOWN INDICATION
     Dosage: UNK
     Route: 065
     Dates: start: 20110216, end: 20110217
  2. LOXOPROFEN SODIUM [Concomitant]
     Dosage: UNK
     Route: 065
     Dates: start: 20110726, end: 20110802
  3. REBAMIPIDE [Concomitant]
     Indication: PRODUCT USED FOR UNKNOWN INDICATION
     Dosage: UNK
     Route: 065
     Dates: start: 20110201, end: 20110320
  4. INDOMETHACIN [Concomitant]
     Dosage: UNK
     Route: 065
     Dates: start: 20110414, end: 20110414
  5. CYCLOSPORINE [Concomitant]
     Dosage: UNK
     Route: 065
     Dates: start: 20110627, end: 20110710
  6. NIFEDIPINE [Concomitant]
     Indication: PRODUCT USED FOR UNKNOWN INDICATION
     Dosage: UNK
     Route: 065
     Dates: start: 20110220, end: 20110220
  7. LOXOPROFEN SODIUM [Concomitant]
     Dosage: UNK
     Route: 065
     Dates: start: 20110804, end: 20110806
  8. SENNOSIDE [Concomitant]
     Indication: PRODUCT USED FOR UNKNOWN INDICATION
     Dosage: UNK
     Route: 065
     Dates: start: 20110211, end: 20110212
  9. TEPRENONE [Concomitant]
     Indication: PRODUCT USED FOR UNKNOWN INDICATION
     Dosage: UNK
     Route: 065
     Dates: start: 20110208, end: 20110212
  10. PREDNISOLONE [Concomitant]
     Indication: PRODUCT USED FOR UNKNOWN INDICATION
     Dosage: UNK
     Route: 065
     Dates: start: 20110201, end: 20110731
  11. CYCLOSPORINE [Concomitant]
     Dosage: UNK
     Route: 065
     Dates: start: 20110201, end: 20110614
  12. FEXOFENADINE HYDROCHLORIDE [Concomitant]
     Indication: PRODUCT USED FOR UNKNOWN INDICATION
     Dosage: UNK
     Dates: start: 20110530, end: 20110612
  13. DEFERASIROX [Concomitant]
     Dosage: UNK
     Route: 065
     Dates: start: 20110613, end: 20110731
  14. LEVOFLOXACIN [Concomitant]
     Indication: PRODUCT USED FOR UNKNOWN INDICATION
     Dosage: UNK
     Route: 065
     Dates: start: 20110208, end: 20110325
  15. ASCORBIC ACID W [Concomitant]
     Indication: PRODUCT USED FOR UNKNOWN INDICATION
     Dosage: UNK
     Route: 065
     Dates: start: 20110201, end: 20110731
  16. SENNOSIDE [Concomitant]
     Dosage: UNK
     Route: 065
     Dates: start: 20110223, end: 20110223
  17. INDOMETHACIN [Concomitant]
     Dosage: UNK
     Route: 065
     Dates: start: 20110418, end: 20110418
  18. LIDOCAINE [Concomitant]
     Dosage: UNK
     Route: 065
     Dates: start: 20110211, end: 20110211
  19. ITRACONAZOLE [Concomitant]
     Indication: PRODUCT USED FOR UNKNOWN INDICATION
     Dosage: UNK
     Route: 065
     Dates: start: 20110208, end: 20110529
  20. ACETAMINOPHEN [Concomitant]
     Indication: PRODUCT USED FOR UNKNOWN INDICATION
     Dosage: UNK
     Route: 065
     Dates: start: 20110208, end: 20110212
  21. CARBAZOCHROME SODIUM SULFONATE [Concomitant]
     Indication: PRODUCT USED FOR UNKNOWN INDICATION
     Dosage: UNK
     Route: 065
     Dates: start: 20110201, end: 20110731
  22. RISEDRONATE SODIUM [Concomitant]
     Indication: PRODUCT USED FOR UNKNOWN INDICATION
     Dosage: UNK
     Route: 065
     Dates: start: 20110205, end: 20110722
  23. LEVOFLOXACIN [Concomitant]
     Dosage: UNK
     Route: 065
     Dates: start: 20110414, end: 20110415
  24. LEVOFLOXACIN [Concomitant]
     Dosage: UNK
     Route: 065
     Dates: start: 20110418, end: 20110423
  25. CYCLOSPORINE [Concomitant]
     Indication: PRODUCT USED FOR UNKNOWN INDICATION
     Dosage: UNK
     Route: 065
     Dates: start: 20100906
  26. FAMOTIDINE [Concomitant]
     Indication: PRODUCT USED FOR UNKNOWN INDICATION
     Dosage: UNK
     Dates: start: 20110320, end: 20110612
  27. OSELTAMIVIR PHOSPHATE [Concomitant]
     Indication: PRODUCT USED FOR UNKNOWN INDICATION
     Dosage: UNK
     Route: 065
     Dates: start: 20110207, end: 20110211
  28. INDOMETHACIN [Concomitant]
     Indication: PRODUCT USED FOR UNKNOWN INDICATION
     Dosage: UNK
     Route: 065
     Dates: start: 20110331, end: 20110331
  29. FAMOTIDINE [Concomitant]
     Dosage: UNK
     Dates: start: 20110613, end: 20110731
  30. VALGANCICLOVIR HYDROCHLORIDE [Concomitant]
     Indication: PRODUCT USED FOR UNKNOWN INDICATION
     Dosage: UNK
     Route: 065
     Dates: start: 20110707, end: 20110731
  31. VITAMIN A [Concomitant]
     Indication: PRODUCT USED FOR UNKNOWN INDICATION
     Dosage: UNK
     Route: 065
     Dates: start: 20110305, end: 20110305
  32. LIDOCAINE [Concomitant]
     Indication: PRODUCT USED FOR UNKNOWN INDICATION
     Dosage: UNK
     Route: 065
     Dates: start: 20110202, end: 20110202
  33. ROXATIDINE ACETATE HCL [Concomitant]
     Indication: PRODUCT USED FOR UNKNOWN INDICATION
     Dosage: UNK
     Route: 065
     Dates: start: 20110207, end: 20110320
  34. VALACYCLOVIR HYDROCHLORIDE [Concomitant]
     Indication: PRODUCT USED FOR UNKNOWN INDICATION
     Dosage: UNK
     Route: 065
     Dates: start: 20110208, end: 20110529
  35. DIPHENHYDRAMINE HCL [Concomitant]
     Indication: PRODUCT USED FOR UNKNOWN INDICATION
     Dosage: UNK
     Route: 065
     Dates: start: 20110208, end: 20110212
  36. THYMOGLOBULIN [Suspect]
     Indication: APLASTIC ANAEMIA
     Dosage: 175 MG, QD
     Route: 042
     Dates: start: 20110208, end: 20110212
  37. DEFERASIROX [Concomitant]
     Indication: PRODUCT USED FOR UNKNOWN INDICATION
     Dosage: UNK
     Route: 065
     Dates: start: 20110530, end: 20110605
  38. LEVOFLOXACIN [Concomitant]
     Dosage: UNK
     Route: 065
     Dates: start: 20110331, end: 20110406
  39. SENNOSIDE [Concomitant]
     Dosage: UNK
     Route: 065
     Dates: start: 20110225, end: 20110225
  40. SENNOSIDE [Concomitant]
     Dosage: UNK
     Route: 065
     Dates: start: 20110317, end: 20110317
  41. KETOPROFEN [Concomitant]
     Indication: PRODUCT USED FOR UNKNOWN INDICATION
     Dosage: UNK
     Route: 065
     Dates: start: 20110320, end: 20110320

REACTIONS (5)
  - ARTHRALGIA [None]
  - CYTOMEGALOVIRUS CHORIORETINITIS [None]
  - CEREBRAL HAEMORRHAGE [None]
  - PNEUMONIA [None]
  - PERIORBITAL HAEMATOMA [None]
